FAERS Safety Report 22064054 (Version 1)
Quarter: 2023Q1

REPORT INFORMATION
  Report Type: Report from Study
  Country: IN (occurrence: IN)
  Receive Date: 20230306
  Receipt Date: 20230306
  Transmission Date: 20230417
  Serious: Yes (Hospitalization)
  Sender: FDA-Public Use
  Company Number: IN-GLAXOSMITHKLINE-IN2023APC033614

PATIENT

DRUGS (1)
  1. MEPOLIZUMAB [Suspect]
     Active Substance: MEPOLIZUMAB
     Indication: Asthma
     Dosage: 100 MG, Z ONCE IN 4 WEEK
     Route: 058
     Dates: start: 20221202

REACTIONS (4)
  - Productive cough [Unknown]
  - Dyspnoea [Unknown]
  - Pyrexia [Unknown]
  - Rhonchi [Unknown]

NARRATIVE: CASE EVENT DATE: 20230214
